FAERS Safety Report 15626932 (Version 2)
Quarter: 2018Q4

REPORT INFORMATION
  Report Type: Spontaneous
  Country: CH (occurrence: CH)
  Receive Date: 20181116
  Receipt Date: 20181120
  Transmission Date: 20190205
  Serious: Yes (Death, Hospitalization)
  Sender: FDA-Public Use
  Company Number: CH-PFIZER INC-2018469508

PATIENT
  Age: 89 Year
  Sex: Male

DRUGS (7)
  1. TEMESTA [LORAZEPAM] [Suspect]
     Active Substance: LORAZEPAM
     Indication: DEMENTIA
  2. PANTOZOL [Concomitant]
     Active Substance: PANTOPRAZOLE SODIUM
     Dosage: 40 MG, DAILY
     Route: 048
  3. ZANIDIP [Concomitant]
     Active Substance: LERCANIDIPINE HYDROCHLORIDE
     Dosage: 5 MG, DAILY
     Route: 048
  4. ZYLORIC [Concomitant]
     Active Substance: ALLOPURINOL
     Dosage: 100 MG, DAILY
     Route: 048
  5. TEMESTA [LORAZEPAM] [Suspect]
     Active Substance: LORAZEPAM
     Indication: AGITATION
     Dosage: 1MG IN THE EVENING
     Route: 048
     Dates: start: 20180826, end: 201809
  6. METO ZEROK [Concomitant]
     Active Substance: METOPROLOL SUCCINATE
     Dosage: 25 MG, DAILY
     Route: 048
  7. MARCOUMAR [Concomitant]
     Active Substance: PHENPROCOUMON
     Dosage: 3 MG, UNK (ACCORDING TO MEDICAL SCHEME)
     Route: 048

REACTIONS (6)
  - Confusional state [Recovered/Resolved]
  - Aggression [Recovered/Resolved]
  - Pneumonia [Fatal]
  - Condition aggravated [Recovered/Resolved]
  - Delirium [Recovered/Resolved]
  - Dysphagia [Unknown]

NARRATIVE: CASE EVENT DATE: 2018
